FAERS Safety Report 9412711 (Version 1)
Quarter: 2013Q3

REPORT INFORMATION
  Report Type: Spontaneous
  Country: FR (occurrence: None)
  Receive Date: 20130716
  Receipt Date: 20130716
  Transmission Date: 20140515
  Serious: Yes (Other)
  Sender: FDA-Public Use
  Company Number: 056-21880-12051865

PATIENT
  Age: 75 Year
  Sex: Male
  Weight: 90 kg

DRUGS (2)
  1. REVLIMID [Suspect]
     Dosage: 10 MG, 21 IN 21 D, PO
     Route: 048
     Dates: start: 20101011
  2. NEORECORMON [Suspect]
     Route: 058
     Dates: start: 20101011

REACTIONS (2)
  - Constipation [None]
  - Faecaloma [None]
